FAERS Safety Report 17646171 (Version 8)
Quarter: 2020Q3

REPORT INFORMATION
  Report Type: Spontaneous
  Country: US (occurrence: US)
  Receive Date: 20200408
  Receipt Date: 20200803
  Transmission Date: 20201102
  Serious: No
  Sender: FDA-Public Use
  Company Number: US-SA-2020SA088815

PATIENT

DRUGS (1)
  1. TOUJEO MAX [Suspect]
     Active Substance: INSULIN GLARGINE
     Indication: TYPE 2 DIABETES MELLITUS
     Dosage: 62 IU, QD (AT NIGHT)
     Route: 065
     Dates: start: 202001

REACTIONS (7)
  - Blood glucose decreased [Unknown]
  - Incorrect dose administered by device [Unknown]
  - Incorrect dose administered [Unknown]
  - Product storage error [Unknown]
  - Vision blurred [Unknown]
  - Device operational issue [Unknown]
  - Wrong technique in device usage process [Unknown]
